FAERS Safety Report 8100226 (Version 2)
Quarter: 2012Q4

REPORT INFORMATION
  Report Type: 
  Country: US (occurrence: US)
  Receive Date: 20110822
  Receipt Date: 20121207
  Transmission Date: 20130627
  Serious: Yes (Death)
  Sender: FDA-Public Use
  Company Number: US-GLAXOSMITHKLINE-B0741117A

PATIENT
  Age: 53 Year
  Sex: Male
  Weight: 93.2 kg

DRUGS (4)
  1. AVANDAMET [Suspect]
     Indication: DIABETES MELLITUS
     Route: 048
     Dates: start: 20080613, end: 20100412
  2. AVANDIA [Suspect]
     Indication: DIABETES MELLITUS
     Route: 048
  3. LISINOPRIL [Concomitant]
     Dates: start: 20080613
  4. SIMVASTATIN [Concomitant]

REACTIONS (4)
  - Sudden cardiac death [Fatal]
  - Myocardial ischaemia [Unknown]
  - Coronary artery disease [Unknown]
  - Myocardial infarction [Unknown]
